FAERS Safety Report 20149076 (Version 1)
Quarter: 2021Q4

REPORT INFORMATION
  Report Type: Report from Study
  Country: CO (occurrence: CO)
  Receive Date: 20211205
  Receipt Date: 20211205
  Transmission Date: 20220303
  Serious: Yes (Hospitalization)
  Sender: FDA-Public Use
  Company Number: CO-ABBVIE-21K-036-4185575-00

PATIENT
  Sex: Male
  Weight: 83 kg

DRUGS (2)
  1. ZEMPLAR [Suspect]
     Active Substance: PARICALCITOL
     Indication: Hyperparathyroidism secondary
     Dosage: POST DIALYSIS
     Route: 042
     Dates: start: 20170112, end: 20211101
  2. ZEMPLAR [Suspect]
     Active Substance: PARICALCITOL
     Indication: Chronic kidney disease

REACTIONS (9)
  - Cardiac disorder [Recovering/Resolving]
  - Gastrooesophageal reflux disease [Recovering/Resolving]
  - Blood phosphorus abnormal [Recovering/Resolving]
  - Haemoglobin decreased [Recovering/Resolving]
  - Ulcer [Recovering/Resolving]
  - Toxicologic test abnormal [Recovering/Resolving]
  - Blood potassium abnormal [Recovering/Resolving]
  - Abnormal faeces [Recovering/Resolving]
  - Weight increased [Recovering/Resolving]

NARRATIVE: CASE EVENT DATE: 20180101
